FAERS Safety Report 15746084 (Version 1)
Quarter: 2018Q4

REPORT INFORMATION
  Report Type: Spontaneous
  Country: UY (occurrence: FR)
  Receive Date: 20181220
  Receipt Date: 20181220
  Transmission Date: 20190205
  Serious: Yes (Hospitalization)
  Sender: FDA-Public Use
  Company Number: UY-009507513-1812FRA005359

PATIENT
  Age: 55 Year
  Sex: Male

DRUGS (2)
  1. TEMODAL [Suspect]
     Active Substance: TEMOZOLOMIDE
     Indication: GLIOMA
     Dosage: AT STANDAR DOSES FOR THE STUPP PROTOCOL
     Route: 048
  2. GLIADEL [Suspect]
     Active Substance: CARMUSTINE
     Indication: GLIOMA
     Dosage: 8 WAFERS, AT STANDAR DOSES FOR THE STUPP PROTOCOL

REACTIONS (2)
  - Cerebral cyst [Unknown]
  - Brain oedema [Unknown]
